FAERS Safety Report 9220687 (Version 2)
Quarter: 2013Q2

REPORT INFORMATION
  Report Type: Spontaneous
  Country: US (occurrence: US)
  Receive Date: 20130409
  Receipt Date: 20130419
  Transmission Date: 20140414
  Serious: Yes (Death)
  Sender: FDA-Public Use
  Company Number: CHPA2013US005990

PATIENT
  Age: 85 Year
  Sex: Female

DRUGS (1)
  1. MAALOX ANTACID/ANTIGAS MAX QDTABS LEMON [Suspect]
     Indication: DYSPEPSIA
     Dosage: UNK, UNK
     Route: 048

REACTIONS (1)
  - Breast cancer [Fatal]
